FAERS Safety Report 11321840 (Version 1)
Quarter: 2015Q3

REPORT INFORMATION
  Report Type: Report from Study
  Country: US (occurrence: US)
  Receive Date: 20150729
  Receipt Date: 20150729
  Transmission Date: 20151125
  Serious: No
  Sender: FDA-Public Use
  Company Number: US-CELGENEUS-USA-2015071084

PATIENT

DRUGS (3)
  1. ZOMETA [Suspect]
     Active Substance: ZOLEDRONIC ACID
     Indication: PRODUCT USED FOR UNKNOWN INDICATION
     Route: 041
  2. REVLIMID [Suspect]
     Active Substance: LENALIDOMIDE
     Indication: PRODUCT USED FOR UNKNOWN INDICATION
     Route: 048
  3. DEXAMETHASONE. [Concomitant]
     Active Substance: DEXAMETHASONE
     Indication: PRODUCT USED FOR UNKNOWN INDICATION
     Route: 065

REACTIONS (9)
  - Chills [Recovered/Resolved]
  - Discomfort [Unknown]
  - Headache [Recovered/Resolved]
  - Dyspepsia [Unknown]
  - Dizziness [Unknown]
  - Influenza [Recovered/Resolved]
  - Bone pain [Recovered/Resolved]
  - Pyrexia [Recovered/Resolved]
  - Nausea [Unknown]
